FAERS Safety Report 9519238 (Version 1)
Quarter: 2013Q3

REPORT INFORMATION
  Report Type: Spontaneous
  Country: US (occurrence: US)
  Receive Date: 20130912
  Receipt Date: 20130912
  Transmission Date: 20140515
  Serious: No
  Sender: FDA-Public Use
  Company Number: US-009507513-1308USA013861

PATIENT
  Sex: 0

DRUGS (2)
  1. STERILE DILUENT [Suspect]
     Dosage: UNK
     Dates: start: 20130319
  2. VARIVAX [Suspect]
     Indication: PROPHYLAXIS
     Dates: start: 20130319, end: 20130319

REACTIONS (2)
  - Expired drug administered [Unknown]
  - No adverse event [Unknown]
